FAERS Safety Report 6463873-7 (Version None)
Quarter: 2009Q4

REPORT INFORMATION
  Report Type: 
  Country: None (occurrence: None)
  Receive Date: 20091130
  Receipt Date: 20091130
  Transmission Date: 20100525
  Serious: Yes (Other)
  Sender: FDA-Public Use
  Company Number: None

PATIENT
  Sex: Female
  Weight: 124.7392 kg

DRUGS (1)
  1. CHANTIX [Suspect]
     Indication: SMOKING CESSATION THERAPY
     Dates: start: 20080701, end: 20090101

REACTIONS (6)
  - COGNITIVE DISORDER [None]
  - COORDINATION ABNORMAL [None]
  - DISORIENTATION [None]
  - DISTURBANCE IN ATTENTION [None]
  - GRIP STRENGTH DECREASED [None]
  - HALLUCINATION [None]
